FAERS Safety Report 7711964-2 (Version None)
Quarter: 2011Q3

REPORT INFORMATION
  Report Type: 
  Country: None (occurrence: None)
  Receive Date: 20110823
  Receipt Date: 20110807
  Transmission Date: 20111222
  Serious: Yes (Other)
  Sender: FDA-Public Use
  Company Number: AUR-APL-2011-04581

PATIENT
  Age: 36 Year
  Sex: Female
  Weight: 102.0593 kg

DRUGS (1)
  1. CIPROFLOXACIN [Suspect]
     Indication: URINARY TRACT INFECTION
     Dosage: 1000 MG (500 MG, 2 IN 1 D), ORAL
     Route: 048
     Dates: start: 20110729, end: 20110731

REACTIONS (6)
  - FEELING ABNORMAL [None]
  - ARTHRALGIA [None]
  - PARAESTHESIA [None]
  - MUSCULOSKELETAL STIFFNESS [None]
  - HYPOAESTHESIA [None]
  - MUSCLE SPASMS [None]
